FAERS Safety Report 12892746 (Version 1)
Quarter: 2016Q4

REPORT INFORMATION
  Report Type: Spontaneous
  Country: US (occurrence: US)
  Receive Date: 20161028
  Receipt Date: 20161028
  Transmission Date: 20170207
  Serious: Yes (Hospitalization)
  Sender: FDA-Public Use
  Company Number: None

PATIENT
  Age: 58 Year
  Sex: Male
  Weight: 118.7 kg

DRUGS (11)
  1. ALBUTEROL. [Concomitant]
     Active Substance: ALBUTEROL
  2. PLAVIX [Concomitant]
     Active Substance: CLOPIDOGREL BISULFATE
  3. LISINOPRIL. [Suspect]
     Active Substance: LISINOPRIL
     Indication: HYPERTENSION
     Route: 048
  4. LEXAPRO [Concomitant]
     Active Substance: ESCITALOPRAM OXALATE
  5. LIPITOR [Concomitant]
     Active Substance: ATORVASTATIN CALCIUM
  6. VITD3 [Concomitant]
  7. FLEXERIL [Concomitant]
     Active Substance: CYCLOBENZAPRINE HYDROCHLORIDE
  8. TRILIPIX [Concomitant]
     Active Substance: FENOFIBRIC ACID
  9. FE [Concomitant]
     Active Substance: IRON
  10. ECOTRIN [Concomitant]
     Active Substance: ASPIRIN
  11. ULORIC [Concomitant]
     Active Substance: FEBUXOSTAT

REACTIONS (4)
  - Renal tubular dysfunction [None]
  - Acute kidney injury [None]
  - Hyperkalaemia [None]
  - Adverse drug reaction [None]

NARRATIVE: CASE EVENT DATE: 20150614
